FAERS Safety Report 10025332 (Version 1)
Quarter: 2014Q1

REPORT INFORMATION
  Report Type: Spontaneous
  Country: US (occurrence: None)
  Receive Date: 20140304
  Receipt Date: 20140304
  Transmission Date: 20141002
  Serious: Yes (Other)
  Sender: FDA-Public Use
  Company Number: RB-50391-2013

PATIENT
  Age: 24 Year
  Sex: Male

DRUGS (3)
  1. SUBOXONE [Suspect]
     Indication: DRUG DEPENDENCE
     Route: 060
     Dates: start: 2011, end: 201211
  2. SUBOXONE 8 MG [Suspect]
     Indication: DRUG DEPENDENCE
     Dosage: (8 MG BID, SUBOXONE FILM SUBLINGUAL)?
     Route: 060
     Dates: start: 201211
  3. KLONOPIN [Concomitant]

REACTIONS (5)
  - Somnolence [None]
  - Lid sulcus deepened [None]
  - Constipation [None]
  - Ocular icterus [None]
  - Glaucoma [None]
